FAERS Safety Report 6886914-1 (Version None)
Quarter: 2010Q3

REPORT INFORMATION
  Report Type: 
  Country: None (occurrence: None)
  Receive Date: 20100727
  Receipt Date: 20100709
  Transmission Date: 20110219
  Serious: Yes (Other)
  Sender: FDA-Public Use
  Company Number: 7010712

PATIENT
  Age: 28 Year
  Sex: Female

DRUGS (3)
  1. MINOCYCLINE HCL [Suspect]
     Indication: RELAPSING-REMITTING MULTIPLE SCLEROSIS
     Dosage: 2 IN 1 D, ORAL
     Route: 048
     Dates: start: 20091105, end: 20100527
  2. REBIF [Suspect]
     Indication: RELAPSING-REMITTING MULTIPLE SCLEROSIS
     Dosage: 22 MCG, 3 IN 1 WK, 44 MCG, 3 IN 1 WK
     Dates: start: 20090909, end: 20091006
  3. REBIF [Suspect]
     Indication: RELAPSING-REMITTING MULTIPLE SCLEROSIS
     Dosage: 22 MCG, 3 IN 1 WK, 44 MCG, 3 IN 1 WK
     Dates: start: 20091007, end: 20100526

REACTIONS (3)
  - ABORTION SPONTANEOUS [None]
  - DRUG EXPOSURE DURING PREGNANCY [None]
  - PREGNANCY [None]
